FAERS Safety Report 9541681 (Version 1)
Quarter: 2013Q2

REPORT INFORMATION
  Report Type: Spontaneous
  Country: US (occurrence: None)
  Receive Date: 20130524
  Receipt Date: 20130524
  Transmission Date: 20140414
  Serious: No
  Sender: FDA-Public Use
  Company Number: PHEH2013US000464

PATIENT
  Sex: Female
  Weight: 102.5 kg

DRUGS (11)
  1. GILENYA [Suspect]
     Route: 048
  2. ONGLYZA (SAXAGLIPTIN HYDROCHLORIDE) [Concomitant]
  3. ZOLPIDEM (ZOLPIDEM) [Concomitant]
  4. MODAFINIL (MODAFINIL) TABLET [Concomitant]
  5. ABILIFY (ARIPIPRAZOLE) TABLET [Concomitant]
  6. LISINOPRIL (LISINOPRIL) TABLET [Concomitant]
  7. XANAX (ALPRAZOLAM) TABLET [Concomitant]
  8. HYDROCODONE (HYDROCODONE) SYRUP [Concomitant]
  9. FLUOXETINE (FLUOXETINE) CAPSULE [Concomitant]
  10. VITAMIN D (ERGOCALCIFEROL) CAPSULE, 1000 U [Concomitant]
  11. FISH OIL (FISH OIL) [Concomitant]

REACTIONS (1)
  - Fatigue [None]
